FAERS Safety Report 8461567-X (Version None)
Quarter: 2012Q2

REPORT INFORMATION
  Report Type: 
  Country: None (occurrence: None)
  Receive Date: 20120625
  Receipt Date: 20120614
  Transmission Date: 20120825
  Serious: Yes (Life-Threatening, Hospitalization)
  Sender: FDA-Public Use
  Company Number: PHHO2012DE008930

PATIENT
  Age: 49 Year
  Sex: Male
  Weight: 90 kg

DRUGS (6)
  1. PROGRAF [Concomitant]
     Indication: PANCREAS TRANSPLANT
     Dosage: 6 MG, QD
     Dates: end: 20111117
  2. MYCOPHENOLIC ACID [Suspect]
     Indication: PANCREAS TRANSPLANT
     Dosage: 720 MG, BID
     Route: 048
     Dates: start: 20111115, end: 20111218
  3. ANTI-THYMOCYTE GLOBULIN NOS [Concomitant]
     Indication: IMMUNOSUPPRESSION
     Dosage: 125 MG, UNK
     Route: 042
     Dates: start: 20111115, end: 20111116
  4. PREDNISOLONE [Concomitant]
     Indication: PANCREAS TRANSPLANT
     Dosage: 4.5 MG, QD
     Route: 048
     Dates: start: 20111115
  5. SANDIMMUNE [Suspect]
     Dosage: 100 MG, BID
     Route: 048
     Dates: start: 20111219
  6. PROGRAF [Concomitant]
     Dosage: 4 MG, BID
     Dates: start: 20111122, end: 20111218

REACTIONS (5)
  - PANCREAS TRANSPLANT REJECTION [None]
  - PANCREATIC ABSCESS [None]
  - CYSTITIS KLEBSIELLA [None]
  - URINARY RETENTION POSTOPERATIVE [None]
  - TACHYARRHYTHMIA [None]
